FAERS Safety Report 12413697 (Version 2)
Quarter: 2016Q2

REPORT INFORMATION
  Report Type: Report from Study
  Country: PL (occurrence: PL)
  Receive Date: 20160527
  Receipt Date: 20160624
  Transmission Date: 20160815
  Serious: Yes (Hospitalization)
  Sender: FDA-Public Use
  Company Number: PL-ABBVIE-16P-129-1635725-00

PATIENT
  Age: 65 Year
  Sex: Male
  Weight: 81 kg

DRUGS (28)
  1. DOXAZOSIN MESILATE [Concomitant]
     Active Substance: DOXAZOSIN MESYLATE
     Indication: PROSTATIC ADENOMA
     Route: 048
     Dates: start: 2014
  2. MEPRELON [Concomitant]
     Indication: PRODUCT USED FOR UNKNOWN INDICATION
     Route: 042
     Dates: start: 20160421, end: 20160422
  3. PYRALGIN [Concomitant]
     Active Substance: DIPYRONE
     Indication: BRADYCARDIA
     Route: 042
     Dates: start: 20160519, end: 20160519
  4. XIMVE [Concomitant]
     Indication: HYPERCHOLESTEROLAEMIA
     Route: 048
     Dates: start: 201511
  5. CLEMASTINUM [Concomitant]
     Active Substance: CLEMASTINE FUMARATE
     Route: 042
     Dates: start: 20160505, end: 20160505
  6. HYDROCORTISONUM [Concomitant]
     Active Substance: HYDROCORTISONE
     Indication: HYPOTONIA
     Route: 042
     Dates: start: 20160402, end: 20160422
  7. HYDROCHLOROTHIAZIDE. [Concomitant]
     Active Substance: HYDROCHLOROTHIAZIDE
     Indication: MYOCARDIAL ISCHAEMIA
     Route: 048
     Dates: start: 201508, end: 20160505
  8. DEXAMETHASONE. [Concomitant]
     Active Substance: DEXAMETHASONE
     Indication: BRADYCARDIA
     Route: 042
     Dates: start: 20160519, end: 20160519
  9. HEVIRAN [Concomitant]
     Active Substance: ACYCLOVIR
     Indication: INFECTION PROPHYLAXIS
     Route: 048
     Dates: start: 20160421
  10. PARACETAMOL [Concomitant]
     Active Substance: ACETAMINOPHEN
     Indication: PRODUCT USED FOR UNKNOWN INDICATION
     Route: 048
     Dates: start: 20160421, end: 20160422
  11. CLEMASTINUM [Concomitant]
     Active Substance: CLEMASTINE FUMARATE
     Route: 042
     Dates: start: 20160428, end: 20160428
  12. HYDROCHLOROTHIAZIDE. [Concomitant]
     Active Substance: HYDROCHLOROTHIAZIDE
     Indication: HYPERTENSION
  13. VENETOCLAX [Suspect]
     Active Substance: VENETOCLAX
     Indication: CHRONIC LYMPHOCYTIC LEUKAEMIA
     Route: 048
  14. PYRALGINUM [Concomitant]
     Indication: HYPOTONIA
     Route: 058
     Dates: start: 20160422, end: 20160422
  15. GA101 [Suspect]
     Active Substance: OBINUTUZUMAB
     Indication: CHRONIC LYMPHOCYTIC LEUKAEMIA
     Dosage: MOST RECENT DOSE PRIOR TO AE ONSET ON 05 MAY 2016; 19 MAY 2016
     Route: 042
     Dates: start: 20160421
  16. CHLORAMBUCIL [Suspect]
     Active Substance: CHLORAMBUCIL
     Indication: CHRONIC LYMPHOCYTIC LEUKAEMIA
     Dosage: MOST RECENT DOSE PRIOR TO AE ONSET ON 05 MAY 2016; 02 JUN 2016
     Route: 048
     Dates: start: 20160421
  17. ALLOPURINOL. [Concomitant]
     Active Substance: ALLOPURINOL
     Indication: PROPHYLAXIS
     Route: 048
     Dates: start: 20160420
  18. POLOCARD [Concomitant]
     Active Substance: ASPIRIN
     Indication: MYOCARDIAL ISCHAEMIA
     Route: 048
     Dates: start: 201508, end: 20160505
  19. CLEMASTINUM [Concomitant]
     Active Substance: CLEMASTINE FUMARATE
     Indication: PRODUCT USED FOR UNKNOWN INDICATION
     Route: 042
     Dates: start: 20160421, end: 20160422
  20. POLPRIL [Concomitant]
     Active Substance: RAMIPRIL
     Indication: PRODUCT USED FOR UNKNOWN INDICATION
     Route: 048
     Dates: start: 201508, end: 20160505
  21. POLPRIL [Concomitant]
     Active Substance: RAMIPRIL
     Indication: HYPERTENSION
  22. SPIRONOL [Concomitant]
     Active Substance: SPIRONOLACTONE
     Indication: MYOCARDIAL ISCHAEMIA
     Route: 048
     Dates: start: 201508, end: 20160505
  23. SPIRONOL [Concomitant]
     Active Substance: SPIRONOLACTONE
     Indication: HYPERTENSION
  24. PARACETAMOL [Concomitant]
     Active Substance: ACETAMINOPHEN
     Route: 048
     Dates: start: 20160428, end: 20160428
  25. SYMASTERIDE [Concomitant]
     Indication: PROSTATIC ADENOMA
     Route: 048
     Dates: start: 2014
  26. BISEPTOL [Concomitant]
     Active Substance: SULFAMETHOXAZOLE\TRIMETHOPRIM
     Indication: INFECTION PROPHYLAXIS
     Route: 048
     Dates: start: 20160421
  27. PARACETAMOL [Concomitant]
     Active Substance: ACETAMINOPHEN
     Route: 048
     Dates: start: 20160505, end: 20160505
  28. SODIUM CHLORIDE. [Concomitant]
     Active Substance: SODIUM CHLORIDE
     Indication: BRADYCARDIA
     Route: 042
     Dates: start: 20160519, end: 20160519

REACTIONS (3)
  - Atrial flutter [Recovered/Resolved]
  - Conduction disorder [Recovered/Resolved]
  - Atrial flutter [Recovered/Resolved]

NARRATIVE: CASE EVENT DATE: 20160506
